FAERS Safety Report 8282139-6 (Version None)
Quarter: 2012Q2

REPORT INFORMATION
  Report Type: 
  Country: None (occurrence: None)
  Receive Date: 20120413
  Receipt Date: 20120403
  Transmission Date: 20120825
  Serious: Yes (Hospitalization)
  Sender: FDA-Public Use
  Company Number: FR-BRISTOL-MYERS SQUIBB COMPANY-16503799

PATIENT
  Age: 5 Decade
  Sex: Female

DRUGS (1)
  1. SPRYCEL [Suspect]
     Dosage: FOR MORE THAN 5 YEARS

REACTIONS (2)
  - POLYCYTHAEMIA [None]
  - PULMONARY ARTERIAL HYPERTENSION [None]
